FAERS Safety Report 7221386-9 (Version None)
Quarter: 2011Q1

REPORT INFORMATION
  Report Type: 
  Country: None (occurrence: None)
  Receive Date: 20110112
  Receipt Date: 20110105
  Transmission Date: 20110831
  Serious: No
  Sender: FDA-Public Use
  Company Number: US-ASTRAZENECA-2011SE00769

PATIENT
  Age: 29 Year
  Sex: Male

DRUGS (6)
  1. HYDROCHLOROTHIAZIDE [Concomitant]
     Indication: HYPERTENSION
  2. SEROQUEL [Suspect]
     Indication: SCHIZOPHRENIA, PARANOID TYPE
     Route: 048
     Dates: start: 20090101
  3. VISTARIL [Concomitant]
     Dosage: PRN
  4. LISINOPRIL [Concomitant]
     Indication: HYPERTENSION
  5. LASIX [Concomitant]
     Indication: FLUID RETENTION
     Dosage: PRN
  6. SEROQUEL [Suspect]
     Route: 048
     Dates: start: 20100101

REACTIONS (5)
  - DIARRHOEA [None]
  - INCORRECT DOSE ADMINISTERED [None]
  - GLOSSODYNIA [None]
  - NERVOUSNESS [None]
  - ANAEMIA [None]
